FAERS Safety Report 9192189 (Version 2)
Quarter: 2013Q2

REPORT INFORMATION
  Report Type: Spontaneous
  Country: SE (occurrence: None)
  Receive Date: 20130325
  Receipt Date: 20130620
  Transmission Date: 20140414
  Serious: Yes (Death)
  Sender: FDA-Public Use
  Company Number: 2013ME0112

PATIENT
  Sex: Female

DRUGS (1)
  1. ORFADIN [Suspect]
     Indication: TYROSINAEMIA
     Dates: start: 20120813

REACTIONS (4)
  - Hepatic failure [None]
  - Bacterial infection [None]
  - Condition aggravated [None]
  - Cardiopulmonary failure [None]
